FAERS Safety Report 13504720 (Version 2)
Quarter: 2017Q3

REPORT INFORMATION
  Report Type: Spontaneous
  Country: US (occurrence: US)
  Receive Date: 20170502
  Receipt Date: 20170724
  Transmission Date: 20171127
  Serious: No
  Sender: FDA-Public Use
  Company Number: US-IMPAX LABORATORIES, INC-2017-IPXL-00131

PATIENT
  Age: 56 Year
  Sex: Female
  Weight: 61 kg

DRUGS (5)
  1. RYTARY [Suspect]
     Active Substance: CARBIDOPA\LEVODOPA
     Indication: PARKINSON^S DISEASE
     Dosage: 3 CAPSULES 3 TIMES A DAY
     Route: 048
     Dates: start: 20170110
  2. RYTARY [Suspect]
     Active Substance: CARBIDOPA\LEVODOPA
     Dosage: 3 CAPSULES 3 TIMES A DAY (06 AM, 10 AM AND 02 PM)
     Route: 048
     Dates: start: 201701
  3. CLONAZEPAM. [Concomitant]
     Active Substance: CLONAZEPAM
     Indication: ANXIETY
     Dosage: 0.5 MG, 2 /DAY
     Route: 065
  4. RYTARY [Suspect]
     Active Substance: CARBIDOPA\LEVODOPA
     Dosage: 2 CAPSULES 4 TIMES A DAY
     Route: 048
     Dates: start: 201701
  5. QUETIAPINE. [Concomitant]
     Active Substance: QUETIAPINE
     Indication: PAIN
     Dosage: 300 MG, PRN
     Route: 065

REACTIONS (1)
  - Drug effect variable [Unknown]

NARRATIVE: CASE EVENT DATE: 20170110
